FAERS Safety Report 4790693-1 (Version None)
Quarter: 2005Q4

REPORT INFORMATION
  Report Type: 
  Country: None (occurrence: None)
  Receive Date: 20051006
  Receipt Date: 20050929
  Transmission Date: 20060501
  Serious: Yes (Other)
  Sender: FDA-Public Use
  Company Number: US-MERCK-0510USA00666

PATIENT
  Sex: Male
  Weight: 86 kg

DRUGS (3)
  1. VIOXX [Suspect]
     Indication: ARTHRITIS
     Route: 048
     Dates: start: 20010101, end: 20020401
  2. VIOXX [Suspect]
     Route: 048
     Dates: start: 20010101, end: 20020401
  3. VIOXX [Suspect]
     Route: 048
     Dates: start: 20010101, end: 20020401

REACTIONS (3)
  - CEREBROVASCULAR ACCIDENT [None]
  - MYOCARDIAL INFARCTION [None]
  - OVERDOSE [None]
